FAERS Safety Report 5900667-2 (Version None)
Quarter: 2008Q3

REPORT INFORMATION
  Report Type: 
  Country: None (occurrence: None)
  Receive Date: 20080926
  Receipt Date: 20080912
  Transmission Date: 20090109
  Serious: Yes (Death)
  Sender: FDA-Public Use
  Company Number: MA-GENENTECH-267716

PATIENT
  Sex: Female

DRUGS (1)
  1. AVASTIN [Suspect]
     Indication: BREAST CANCER METASTATIC
     Dosage: 750 MG, Q2W
     Route: 042
     Dates: start: 20080404

REACTIONS (4)
  - DISSEMINATED INTRAVASCULAR COAGULATION [None]
  - FISTULA [None]
  - LIVER DISORDER [None]
  - TRANSAMINASES INCREASED [None]
